FAERS Safety Report 6656257-X (Version None)
Quarter: 2010Q1

REPORT INFORMATION
  Report Type: 
  Country: None (occurrence: None)
  Receive Date: 20100324
  Receipt Date: 20100315
  Transmission Date: 20100710
  Serious: Yes (Hospitalization)
  Sender: FDA-Public Use
  Company Number: 2010SP007867

PATIENT
  Age: 83 Year
  Sex: Female

DRUGS (7)
  1. REMERON [Suspect]
     Indication: DRUG USE FOR UNKNOWN INDICATION
     Dosage: 15 MG;QD;PO
     Route: 048
     Dates: start: 20091021, end: 20100126
  2. CRESTOR [Suspect]
     Indication: DRUG USE FOR UNKNOWN INDICATION
     Dosage: 25 MG; ;PO
     Route: 048
  3. AMARYL [Concomitant]
  4. CILOSTATE [Concomitant]
  5. MICARDIS [Concomitant]
  6. ALDACTONE [Concomitant]
  7. RENIVEZE [Concomitant]

REACTIONS (1)
  - NEUROLEPTIC MALIGNANT SYNDROME [None]
